FAERS Safety Report 4909162-0 (Version None)
Quarter: 2006Q1

REPORT INFORMATION
  Report Type: 
  Country: None (occurrence: None)
  Receive Date: 20060213
  Receipt Date: 20060202
  Transmission Date: 20060701
  Serious: Yes (Death)
  Sender: FDA-Public Use
  Company Number: US-BRISTOL-MYERS SQUIBB COMPANY-13270491

PATIENT
  Age: 51 Year
  Sex: Male

DRUGS (3)
  1. AVALIDE [Suspect]
     Indication: HYPERTENSION
     Dates: start: 20040401
  2. PLAVIX [Suspect]
     Indication: MYOCARDIAL INFARCTION
     Dates: start: 20040401
  3. ASPIRIN [Concomitant]

REACTIONS (1)
  - ACUTE MYOCARDIAL INFARCTION [None]
